FAERS Safety Report 10375405 (Version 1)
Quarter: 2014Q1

REPORT INFORMATION
  Report Type: Spontaneous
  Country: US (occurrence: None)
  Receive Date: 20140306
  Receipt Date: 20140306
  Transmission Date: 20141002
  Serious: Yes (Other)
  Sender: FDA-Public Use
  Company Number: 163-21880-12120927

PATIENT
  Age: 68 Year
  Sex: Male

DRUGS (18)
  1. REVLIMID [Suspect]
     Indication: LYMPHOCYTIC LEUKAEMIA
     Route: 048
     Dates: start: 20121113, end: 20130115
  2. XALATAN (LATANOPROST) [Concomitant]
  3. HYDROCODONE/ACETAMINOPHEN (REMEDEINE) [Concomitant]
  4. SULFAMETH/TRIMETHOPRIM (BACTRIM) [Concomitant]
  5. ALENDRONATE (ALENDRONATE SODIUM (TABLETS) [Concomitant]
  6. LISINOPRIL (LISINOPRIL) [Concomitant]
  7. LANSOPRAZOLE (LANSOPRAZOLE) [Concomitant]
  8. SYNTHROID (LEVOTHYROXINE SODIUM (TABLETS) [Concomitant]
  9. ACYCLOVIR (ACICLOVIR) (TABLETS) [Concomitant]
  10. ANDROGEL (TESTOSTERONE) (GEL) [Concomitant]
  11. ARIMIDEX (ANASTROZOLE) (TABLETS) [Concomitant]
  12. OMEPRAZOLE (OMEPRAZOLE) [Concomitant]
  13. CALCIUM + D (CALCIUM D3 ^STADA^) (TABLETS) [Concomitant]
  14. CENTRUM SILVER (CENTRUM SILVER) (TABLETS) [Concomitant]
  15. FLUCONAZOLE (FLUICONAZOLE) (TABLETS) [Concomitant]
  16. ZOLPIDEM (ZOLPIDEM) (TABLETS) [Concomitant]
  17. LATANOPROST (LATANOPROST) (OPTHALMLIC) [Concomitant]
  18. BACTRIM DS (BACTRIM) [Concomitant]

REACTIONS (7)
  - Pancytopenia [None]
  - Insomnia [None]
  - Cough [None]
  - Nasal congestion [None]
  - Fatigue [None]
  - Local swelling [None]
  - Nasopharyngitis [None]
